FAERS Safety Report 8162636 (Version 3)
Quarter: 2012Q4

REPORT INFORMATION
  Report Type: 
  Country: US (occurrence: US)
  Receive Date: 20110929
  Receipt Date: 20121112
  Transmission Date: 20130627
  Serious: Yes (Other)
  Sender: FDA-Public Use
  Company Number: US-ASTRAZENECA-2011SE56624

PATIENT
  Age: 78 Year
  Sex: Male

DRUGS (2)
  1. CRESTOR [Suspect]
     Route: 048
  2. NEXIUM [Suspect]
     Route: 048

REACTIONS (9)
  - Blindness [Unknown]
  - Lymphoma [Recovering/Resolving]
  - Macular degeneration [Unknown]
  - Neoplasm malignant [Unknown]
  - Aneurysm [Unknown]
  - Cataract [Unknown]
  - Retinal detachment [Unknown]
  - Diabetes mellitus [Unknown]
  - Glaucoma [Unknown]
